FAERS Safety Report 4631101-0 (Version None)
Quarter: 2005Q2

REPORT INFORMATION
  Report Type: 
  Country: None (occurrence: None)
  Receive Date: 20050406
  Receipt Date: 20050406
  Transmission Date: 20051028
  Serious: No
  Sender: FDA-Public Use
  Company Number: None

PATIENT
  Age: 71 Year
  Sex: Male
  Weight: 72.5755 kg

DRUGS (1)
  1. NORPACE CR [Suspect]
     Indication: ATRIAL FIBRILLATION
     Dosage: 150 MG X 5 DAILY ORAL
     Route: 048
     Dates: start: 20041223, end: 20050222

REACTIONS (4)
  - ANXIETY [None]
  - ASTHENIA [None]
  - ATRIAL FIBRILLATION [None]
  - PHARMACEUTICAL PRODUCT COMPLAINT [None]
